FAERS Safety Report 25295947 (Version 1)
Quarter: 2025Q2

REPORT INFORMATION
  Report Type: Spontaneous
  Country: US (occurrence: US)
  Receive Date: 20250511
  Receipt Date: 20250511
  Transmission Date: 20250717
  Serious: Yes (Other)
  Sender: RECORDATI
  Company Number: US-ORPHANEU-2025003185

PATIENT
  Age: 38 Year
  Sex: Female

DRUGS (6)
  1. OSILODROSTAT [Suspect]
     Active Substance: OSILODROSTAT
     Indication: Cushing^s syndrome
     Dosage: 2 MILLIGRAM, BID
     Dates: start: 20210903, end: 20211003
  2. OSILODROSTAT [Suspect]
     Active Substance: OSILODROSTAT
     Indication: Hyperplasia adrenal
     Dosage: 3 MILLIGRAM, BID (DOSE INCREASED)
     Dates: start: 20211004, end: 20211028
  3. OSILODROSTAT [Suspect]
     Active Substance: OSILODROSTAT
     Dosage: 4 MILLIGRAM, BID (DOSE INCREASED)
     Dates: start: 20211029, end: 20211110
  4. OSILODROSTAT [Suspect]
     Active Substance: OSILODROSTAT
     Dosage: 6 MILLIGRAM, BID (DOSE INCREASED TO 6 MG FROM 4 MG)
     Dates: start: 20211111, end: 20211128
  5. OSILODROSTAT [Suspect]
     Active Substance: OSILODROSTAT
     Dosage: 8 MILLIGRAM, BID (DOSE INCREASED TO 8 MG FROM 6 MG)
     Dates: start: 20211129, end: 20211208
  6. OSILODROSTAT [Suspect]
     Active Substance: OSILODROSTAT
     Dosage: 10 MILLIGRAM, BID (DOSE INCREASED TO 10 MG FROM 8 MG)
     Dates: start: 20211209, end: 20220126

REACTIONS (5)
  - Blood corticotrophin decreased [Recovered/Resolved]
  - Primary adrenal insufficiency [Recovering/Resolving]
  - Adrenal atrophy [Unknown]
  - Therapeutic product effect prolonged [Recovered/Resolved]
  - Disease progression [Recovered/Resolved]

NARRATIVE: CASE EVENT DATE: 20210101
